FAERS Safety Report 5500286-6 (Version None)
Quarter: 2007Q4

REPORT INFORMATION
  Report Type: 
  Country: None (occurrence: None)
  Receive Date: 20071025
  Receipt Date: 20071009
  Transmission Date: 20080405
  Serious: Yes (Other)
  Sender: FDA-Public Use
  Company Number: 162727ISR

PATIENT
  Age: 73 Year
  Sex: Male

DRUGS (1)
  1. CARVEDILOL [Suspect]
     Indication: HYPERTENSION
     Dosage: 3.125 MG (3.125 MG, 1 IN 1 D) ORAL
     Route: 048
     Dates: start: 20070501

REACTIONS (3)
  - BALANCE DISORDER [None]
  - DIZZINESS [None]
  - PAIN IN EXTREMITY [None]
